FAERS Safety Report 10347131 (Version 2)
Quarter: 2014Q4

REPORT INFORMATION
  Report Type: Spontaneous
  Country: GB (occurrence: GB)
  Receive Date: 20140729
  Receipt Date: 20141121
  Transmission Date: 20150528
  Serious: Yes (Disabling)
  Sender: FDA-Public Use
  Company Number: GB-ASTRAZENECA-2014SE52875

PATIENT
  Age: 72 Year
  Sex: Female
  Weight: 93.7 kg

DRUGS (23)
  1. ADCAL-D3 [Concomitant]
     Active Substance: CALCIUM CARBONATE\CHOLECALCIFEROL
     Route: 048
  2. ALENDRONATE [Concomitant]
     Active Substance: ALENDRONATE SODIUM
     Route: 048
  3. HEPARIN SODIUM. [Concomitant]
     Active Substance: HEPARIN SODIUM
     Dosage: 3 TIMES A DAY
  4. MEROPENEM. [Suspect]
     Active Substance: MEROPENEM
     Indication: BRONCHIECTASIS
     Route: 042
     Dates: start: 20110203, end: 20110215
  5. MEROPENEM. [Suspect]
     Active Substance: MEROPENEM
     Indication: BRONCHIECTASIS
     Route: 042
     Dates: start: 20110216, end: 20110217
  6. FUROSEMIDE. [Concomitant]
     Active Substance: FUROSEMIDE
     Route: 048
  7. MONTELUKAST [Concomitant]
     Active Substance: MONTELUKAST SODIUM
     Route: 048
  8. SALBUTAMOL [Concomitant]
     Active Substance: ALBUTEROL
     Indication: WHEEZING
     Route: 055
  9. TIOTROPIUM [Concomitant]
     Active Substance: TIOTROPIUM
     Route: 055
  10. COLOMYCIN [Suspect]
     Active Substance: COLISTIN
     Indication: BRONCHIECTASIS
     Route: 042
     Dates: start: 201102, end: 20110217
  11. SALBUTAMOL [Concomitant]
     Active Substance: ALBUTEROL
     Indication: WHEEZING
     Route: 055
  12. COLOMYCIN [Suspect]
     Active Substance: COLISTIN
     Indication: BRONCHIECTASIS
     Route: 042
     Dates: start: 20110205, end: 201102
  13. IPRATROPIUM [Concomitant]
     Active Substance: IPRATROPIUM
     Route: 055
  14. COLOMYCIN [Suspect]
     Active Substance: COLISTIN
     Indication: BACTERIAL DISEASE CARRIER
     Route: 042
     Dates: start: 20110205, end: 201102
  15. AZITHROMYCIN [Concomitant]
     Active Substance: AZITHROMYCIN ANHYDROUS
     Route: 048
  16. CHLORPHENAMINE [Concomitant]
     Active Substance: CHLORPHENIRAMINE MALEATE
     Indication: PRURITUS
     Route: 048
  17. CLOTRIMAZOLE. [Concomitant]
     Active Substance: CLOTRIMAZOLE
     Indication: CANDIDA INFECTION
     Dosage: 3 TIMES A DAY
  18. COLOMYCIN [Suspect]
     Active Substance: COLISTIN
     Indication: BACTERIAL DISEASE CARRIER
     Route: 042
     Dates: start: 201102, end: 20110217
  19. CARBOCISTEINE [Concomitant]
     Active Substance: CARBOCYSTEINE
     Route: 048
  20. SERETIDE [Concomitant]
     Active Substance: FLUTICASONE FUROATE\SALMETEROL XINAFOATE
     Route: 055
  21. PREDNISOLONE. [Concomitant]
     Active Substance: PREDNISOLONE
     Route: 048
  22. CHLORPHENAMINE [Concomitant]
     Active Substance: CHLORPHENIRAMINE MALEATE
     Indication: ERYTHEMA
     Route: 048
  23. LEKOVIT CA [Concomitant]
     Active Substance: CALCIUM CARBONATE\CHOLECALCIFEROL
     Route: 048

REACTIONS (13)
  - Decreased appetite [Unknown]
  - Weight increased [Not Recovered/Not Resolved]
  - Headache [Recovered/Resolved]
  - Constipation [Unknown]
  - Prescribed overdose [Recovered/Resolved]
  - Nausea [Unknown]
  - Balance disorder [Not Recovered/Not Resolved]
  - Secretion discharge [Unknown]
  - Dizziness [Unknown]
  - Fall [Not Recovered/Not Resolved]
  - Burning sensation [Unknown]
  - Off label use [Recovered/Resolved]
  - Rash [Unknown]

NARRATIVE: CASE EVENT DATE: 201102
